FAERS Safety Report 13261103 (Version 3)
Quarter: 2017Q3

REPORT INFORMATION
  Report Type: Report from Study
  Country: None (occurrence: CZ)
  Receive Date: 20170222
  Receipt Date: 20170829
  Transmission Date: 20171127
  Serious: Yes (Other)
  Sender: FDA-Public Use
  Company Number: CZ-CELGENEUS-CZE-2017023370

PATIENT
  Age: 73 Year
  Sex: Male

DRUGS (2)
  1. IMNOVID [Suspect]
     Active Substance: POMALIDOMIDE
     Indication: PLASMA CELL MYELOMA
     Dosage: 4 MILLIGRAM
     Route: 048
  2. IMNOVID [Suspect]
     Active Substance: POMALIDOMIDE
     Dosage: 4 MILLIGRAM
     Route: 048
     Dates: start: 20151101

REACTIONS (10)
  - Fatigue [Unknown]
  - Pruritus [Unknown]
  - Pancreatic carcinoma metastatic [Unknown]
  - Constipation [Unknown]
  - Muscle spasms [Unknown]
  - Anaemia [Unknown]
  - Hyperhidrosis [Unknown]
  - Neutropenia [Unknown]
  - Vertigo [Unknown]
  - Tremor [Unknown]
